FAERS Safety Report 8462997-2 (Version None)
Quarter: 2012Q2

REPORT INFORMATION
  Report Type: 
  Country: None (occurrence: None)
  Receive Date: 20120625
  Receipt Date: 20120619
  Transmission Date: 20120825
  Serious: Yes (Hospitalization)
  Sender: FDA-Public Use
  Company Number: JP-VIIV HEALTHCARE LIMITED-B0805179A

PATIENT
  Sex: Male

DRUGS (7)
  1. EPZICOM [Suspect]
     Dosage: 90IUAX PER DAY
     Route: 048
     Dates: start: 20120526, end: 20120526
  2. EPZICOM [Suspect]
     Indication: HIV INFECTION
     Dosage: 1IUAX PER DAY
     Route: 048
     Dates: start: 20071201, end: 20120526
  3. NORVIR [Concomitant]
     Indication: HIV INFECTION
     Dosage: 100MG PER DAY
     Route: 048
     Dates: start: 20071201, end: 20120526
  4. ZOLPIDEM [Suspect]
     Indication: PRODUCT USED FOR UNKNOWN INDICATION
     Dosage: 700MG PER DAY
     Route: 048
     Dates: start: 20120526, end: 20120526
  5. OLMESARTAN MEDOXOMIL [Suspect]
     Indication: HYPERTENSION
     Dosage: 20MG PER DAY
     Route: 048
     Dates: start: 20070101, end: 20120526
  6. PREZISTA [Concomitant]
     Indication: HIV INFECTION
     Dosage: 800MG PER DAY
     Route: 048
     Dates: start: 20071201, end: 20120526
  7. OLMESARTAN MEDOXOMIL [Suspect]
     Dosage: 1200MG PER DAY
     Route: 048
     Dates: start: 20120526, end: 20120526

REACTIONS (2)
  - OVERDOSE [None]
  - RENAL FAILURE ACUTE [None]
